FAERS Safety Report 8383008-3 (Version None)
Quarter: 2012Q2

REPORT INFORMATION
  Report Type: 
  Country: None (occurrence: None)
  Receive Date: 20120524
  Receipt Date: 20120518
  Transmission Date: 20120825
  Serious: Yes (Hospitalization, Other)
  Sender: FDA-Public Use
  Company Number: US-PFIZER INC-2012035959

PATIENT
  Sex: Male

DRUGS (2)
  1. ZOLOFT [Suspect]
     Dosage: UNK
     Dates: end: 20110101
  2. ZOLOFT [Suspect]
     Dosage: 100MG, TWO IN THE MORNING

REACTIONS (20)
  - SUICIDE ATTEMPT [None]
  - BIPOLAR I DISORDER [None]
  - INSOMNIA [None]
  - ESSENTIAL HYPERTENSION [None]
  - AGGRESSION [None]
  - MENTAL DISORDER [None]
  - PSYCHOMOTOR HYPERACTIVITY [None]
  - DRUG DEPENDENCE [None]
  - ANGER [None]
  - FATIGUE [None]
  - MYOCARDIAL INFARCTION [None]
  - BENIGN INTRACRANIAL HYPERTENSION [None]
  - DEMENTIA [None]
  - INTENTIONAL OVERDOSE [None]
  - ANXIETY [None]
  - MAJOR DEPRESSION [None]
  - HALLUCINATION, AUDITORY [None]
  - POST-TRAUMATIC STRESS DISORDER [None]
  - TESTICULAR DISORDER [None]
  - BACK PAIN [None]
